FAERS Safety Report 12483431 (Version 1)
Quarter: 2016Q2

REPORT INFORMATION
  Report Type: Spontaneous
  Country: ZA (occurrence: ZA)
  Receive Date: 20160621
  Receipt Date: 20160621
  Transmission Date: 20160815
  Serious: Yes (Other)
  Sender: FDA-Public Use
  Company Number: ZA-SUN PHARMACEUTICAL INDUSTRIES LTD-2015R5-106682

PATIENT
  Age: 49 Year
  Sex: Female

DRUGS (2)
  1. SINOPREN [Suspect]
     Active Substance: LISINOPRIL
     Indication: HYPERTENSION
     Dosage: 10 MG, QD
     Route: 048
     Dates: start: 20151026, end: 20151111
  2. SINOPREN [Suspect]
     Active Substance: LISINOPRIL
     Indication: HYPERTENSION
     Dosage: 10 MG, QD
     Route: 048
     Dates: start: 20151111, end: 20151115

REACTIONS (9)
  - Vomiting [Unknown]
  - Pyuria [Unknown]
  - Nausea [Recovered/Resolved]
  - Urinary tract infection [None]
  - Headache [Unknown]
  - Haematinuria [Recovered/Resolved]
  - Urine leukocyte esterase positive [Unknown]
  - Product contamination [Unknown]
  - Fatigue [Recovered/Resolved]

NARRATIVE: CASE EVENT DATE: 20151112
